FAERS Safety Report 9332653 (Version 1)
Quarter: 2013Q2

REPORT INFORMATION
  Report Type: Spontaneous
  Country: US (occurrence: US)
  Receive Date: 20130606
  Receipt Date: 20130606
  Transmission Date: 20140414
  Serious: No
  Sender: FDA-Public Use
  Company Number: US-B.I. PHARMACEUTICALS,INC./RIDGEFIELD-2013-BI-15405BP

PATIENT
  Age: 56 Year
  Sex: Female
  Weight: 58 kg

DRUGS (6)
  1. MICARDIS [Suspect]
     Indication: HYPERTENSION
     Dosage: 80 MG
     Route: 048
     Dates: start: 2010
  2. CYCLOBENZAPRINE [Concomitant]
     Indication: NECK PAIN
     Route: 048
     Dates: start: 2009
  3. NORVASC [Concomitant]
     Indication: HYPERTENSION
     Dosage: 10 MG
     Route: 048
     Dates: start: 2009
  4. VERAPAMIL [Concomitant]
     Indication: HYPERTENSION
     Dosage: 240 MG
     Route: 048
     Dates: start: 2007
  5. LORATADINE [Concomitant]
     Indication: LACRIMATION INCREASED
     Route: 048
     Dates: start: 2010
  6. LORATADINE [Concomitant]
     Indication: RHINORRHOEA

REACTIONS (2)
  - Glossodynia [Not Recovered/Not Resolved]
  - Oral disorder [Recovered/Resolved]
